FAERS Safety Report 8551485-0 (Version None)
Quarter: 2012Q3

REPORT INFORMATION
  Report Type: 
  Country: None (occurrence: None)
  Receive Date: 20120730
  Receipt Date: 20120718
  Transmission Date: 20120928
  Serious: Yes (Other)
  Sender: FDA-Public Use
  Company Number: JP-ROCHE-1003895

PATIENT
  Sex: Female

DRUGS (16)
  1. ACTEMRA [Suspect]
     Dosage: DOSAGE IS UNCERTAIN.
     Route: 041
  2. ACTEMRA [Suspect]
     Indication: JUVENILE ARTHRITIS
     Route: 041
     Dates: start: 20101113, end: 20110716
  3. PREDNISOLONE [Concomitant]
     Route: 048
     Dates: start: 20101127, end: 20110107
  4. EBASTINE [Concomitant]
     Indication: PROPHYLAXIS
     Dosage: THIS MEDICINE PREINITIATION ADMINISTERING
     Route: 048
     Dates: start: 20101211, end: 20110903
  5. PREDNISOLONE [Concomitant]
     Indication: JUVENILE ARTHRITIS
     Route: 048
     Dates: start: 20101113, end: 20101126
  6. PREDNISOLONE [Concomitant]
     Route: 048
     Dates: start: 20110402
  7. LOXOPROFEN SODIUM [Concomitant]
     Indication: JUVENILE ARTHRITIS
     Route: 048
     Dates: start: 20110604, end: 20110614
  8. PREDNISOLONE [Concomitant]
     Route: 048
     Dates: start: 20110108, end: 20110206
  9. PREDNISOLONE [Concomitant]
     Route: 048
     Dates: start: 20110207, end: 20110401
  10. ONEALFA [Concomitant]
     Route: 048
  11. SULFAMETHOXAZOLE AND TRIMETHOPRIM [Concomitant]
     Indication: PROPHYLAXIS
     Route: 048
     Dates: end: 20110218
  12. ACTEMRA [Suspect]
     Route: 041
     Dates: start: 20110806, end: 20110903
  13. METHOTREXATE [Concomitant]
     Indication: JUVENILE ARTHRITIS
     Route: 048
     Dates: start: 20101113, end: 20110603
  14. LOXONIN [Concomitant]
     Indication: JUVENILE ARTHRITIS
     Route: 048
     Dates: end: 20101126
  15. MUCOSTA [Concomitant]
     Route: 048
     Dates: start: 20101127
  16. CYTOTEC [Concomitant]
     Route: 048
     Dates: end: 20101126

REACTIONS (4)
  - LYMPHADENITIS [None]
  - BRONCHITIS [None]
  - MATERNAL EXPOSURE DURING PREGNANCY [None]
  - PREMATURE LABOUR [None]
